FAERS Safety Report 14080378 (Version 1)
Quarter: 2017Q4

REPORT INFORMATION
  Report Type: Spontaneous
  Country: US (occurrence: US)
  Receive Date: 20171012
  Receipt Date: 20171012
  Transmission Date: 20180321
  Serious: No
  Sender: FDA-Public Use
  Company Number: US-MYLANLABS-2017M1028784

PATIENT
  Age: 65 Year
  Sex: Male
  Weight: 113 kg

DRUGS (1)
  1. TAMSULOSIN HCL CAPSULES, USP [Suspect]
     Active Substance: TAMSULOSIN HYDROCHLORIDE
     Indication: URINARY HESITATION
     Dosage: 2 DF, QD
     Route: 048
     Dates: start: 20170502, end: 20170503

REACTIONS (2)
  - Hangover [Unknown]
  - Dizziness [Recovered/Resolved]

NARRATIVE: CASE EVENT DATE: 20170502
